FAERS Safety Report 21643023 (Version 4)
Quarter: 2022Q4

REPORT INFORMATION
  Report Type: Report from Study
  Country: TR (occurrence: None)
  Receive Date: 20221125
  Receipt Date: 20221229
  Transmission Date: 20230113
  Serious: Yes (Hospitalization)
  Sender: FDA-Public Use
  Company Number: TR-ROCHE-3224857

PATIENT
  Age: 65 Year
  Sex: Male
  Weight: 77 kg

DRUGS (15)
  1. ATEZOLIZUMAB [Suspect]
     Active Substance: ATEZOLIZUMAB
     Indication: Small cell lung cancer extensive stage
     Dosage: MOST RECENT DOSE OF 1200 MG ATEZOLIZUMAB PRIOR TO AE AND SAE: 02/NOV/2022
     Route: 042
     Dates: start: 20221011
  2. CARBOPLATIN [Suspect]
     Active Substance: CARBOPLATIN
     Indication: Small cell lung cancer extensive stage
     Dosage: MOST RECENT DOSE OF 500 MG CARBOPLATIN PRIOR TO AE AND SAE: 02/NOV/2022
     Route: 042
     Dates: start: 20221011
  3. ETOPOSIDE [Suspect]
     Active Substance: ETOPOSIDE
     Indication: Small cell lung cancer extensive stage
     Dosage: MOST RECENT DOSE OF 180 MG ETOPOSIDE STUDY DRUG PRIOR TO AE AND SAE: 04-NOV-2022
     Route: 042
     Dates: start: 20221011
  4. PROTINUM [Concomitant]
  5. VIDAPTIN MET [Concomitant]
     Dates: start: 2012
  6. XARELTO [Concomitant]
     Active Substance: RIVAROXABAN
  7. METOPROLOL [Concomitant]
     Active Substance: METOPROLOL
     Dates: start: 2012
  8. DELIX [Concomitant]
     Dates: start: 2012
  9. JARDIANCE [Concomitant]
     Active Substance: EMPAGLIFLOZIN
     Dates: start: 2012
  10. MONOKET [Concomitant]
     Active Substance: ISOSORBIDE MONONITRATE
     Dates: start: 2016
  11. SPYLACTON [Concomitant]
     Dates: start: 2012
  12. ALVASTIN [Concomitant]
     Dates: start: 2012
  13. PAROL [Concomitant]
     Active Substance: ACETAMINOPHEN
     Indication: Pyrexia
     Dates: start: 20221122, end: 20221123
  14. GERALGINE-K [Concomitant]
     Indication: Productive cough
     Dates: start: 20221221
  15. DAC [Concomitant]
     Indication: Productive cough
     Dates: start: 20221221

REACTIONS (1)
  - COVID-19 [Not Recovered/Not Resolved]

NARRATIVE: CASE EVENT DATE: 20221123
